FAERS Safety Report 11038686 (Version 1)
Quarter: 2015Q2

REPORT INFORMATION
  Report Type: Spontaneous
  Country: CN (occurrence: CN)
  Receive Date: 20150416
  Receipt Date: 20150416
  Transmission Date: 20150821
  Serious: Yes (Hospitalization)
  Sender: FDA-Public Use
  Company Number: CN-PFIZER INC-2015126081

PATIENT
  Age: 36 Year
  Sex: Female
  Weight: 51 kg

DRUGS (1)
  1. SOLU-MEDROL [Suspect]
     Active Substance: METHYLPREDNISOLONE SODIUM SUCCINATE
     Dosage: 80 MG, 1X/DAY
     Route: 041
     Dates: start: 20141209, end: 20141210

REACTIONS (1)
  - Bone pain [Recovering/Resolving]

NARRATIVE: CASE EVENT DATE: 20141210
